FAERS Safety Report 5245321-8 (Version None)
Quarter: 2007Q1

REPORT INFORMATION
  Report Type: 
  Country: None (occurrence: None)
  Receive Date: 20070223
  Receipt Date: 20070214
  Transmission Date: 20070707
  Serious: Yes (Hospitalization)
  Sender: FDA-Public Use
  Company Number: FR-GLAXOSMITHKLINE-B0459084A

PATIENT
  Age: 54 Year
  Sex: Female

DRUGS (12)
  1. AUGMENTIN '125' [Suspect]
     Indication: GENERAL ANAESTHESIA
     Route: 042
     Dates: start: 20060925, end: 20060925
  2. LOZOL [Concomitant]
     Route: 048
  3. RANIPLEX [Concomitant]
  4. ATARAX [Concomitant]
     Indication: GENERAL ANAESTHESIA
     Dates: start: 20060925
  5. XANAX [Concomitant]
     Indication: GENERAL ANAESTHESIA
     Dates: start: 20060925
  6. PROPOFOL [Concomitant]
     Indication: GENERAL ANAESTHESIA
     Dates: start: 20060925, end: 20060925
  7. REMIFENTANIL [Concomitant]
     Indication: GENERAL ANAESTHESIA
     Dates: start: 20060925, end: 20060925
  8. KETAMINE HCL [Concomitant]
     Indication: GENERAL ANAESTHESIA
     Dates: start: 20060925, end: 20060925
  9. SOLU-MEDROL [Concomitant]
     Indication: GENERAL ANAESTHESIA
     Dates: start: 20060925, end: 20060925
  10. PERFALGAN [Concomitant]
     Indication: GENERAL ANAESTHESIA
     Dates: start: 20060925, end: 20060925
  11. ATROPINE [Concomitant]
     Indication: GENERAL ANAESTHESIA
     Dates: start: 20060925, end: 20060925
  12. DESFLURANE [Concomitant]
     Indication: GENERAL ANAESTHESIA
     Dates: start: 20060925, end: 20060925

REACTIONS (4)
  - ANAPHYLACTIC REACTION [None]
  - CIRCULATORY COLLAPSE [None]
  - HYPOTENSION [None]
  - TACHYCARDIA [None]
